FAERS Safety Report 6293750-6 (Version None)
Quarter: 2009Q3

REPORT INFORMATION
  Report Type: 
  Country: None (occurrence: None)
  Receive Date: 20090803
  Receipt Date: 20090724
  Transmission Date: 20100115
  Serious: Yes (Hospitalization)
  Sender: FDA-Public Use
  Company Number: DE-AMGEN-US358073

PATIENT
  Sex: Female

DRUGS (2)
  1. ENBREL [Suspect]
     Indication: RHEUMATOID ARTHRITIS
     Route: 058
     Dates: start: 20010101, end: 20060101
  2. COMBAREN [Suspect]
     Indication: BONE PAIN
     Dosage: 2 - 3 TABLETS DAILY
     Route: 048
     Dates: end: 20060101

REACTIONS (4)
  - ARTHRODESIS [None]
  - DISEASE PROGRESSION [None]
  - DRUG INEFFECTIVE [None]
  - GASTRIC ULCER [None]
